FAERS Safety Report 23735971 (Version 2)
Quarter: 2024Q2

REPORT INFORMATION
  Report Type: Report from Study
  Country: CA (occurrence: CA)
  Receive Date: 20240412
  Receipt Date: 20240618
  Transmission Date: 20240716
  Serious: Yes (Other)
  Sender: FDA-Public Use
  Company Number: CA-UCBSA-2024017543

PATIENT
  Age: 22 Year
  Sex: Female

DRUGS (2)
  1. CERTOLIZUMAB PEGOL [Suspect]
     Active Substance: CERTOLIZUMAB PEGOL
     Indication: Ankylosing spondylitis
     Dosage: 400 MILLIGRAM, AS NEEDED (PRN)
     Route: 058
     Dates: start: 20230906
  2. CERTOLIZUMAB PEGOL [Suspect]
     Active Substance: CERTOLIZUMAB PEGOL
     Dosage: 200 MILLIGRAM, AS NEEDED (PRN)
     Route: 058

REACTIONS (2)
  - Ankylosing spondylitis [Unknown]
  - Product use issue [Unknown]

NARRATIVE: CASE EVENT DATE: 20230906
